FAERS Safety Report 7971121 (Version 4)
Quarter: 2012Q4

REPORT INFORMATION
  Report Type: 
  Country: IE (occurrence: IE)
  Receive Date: 20110602
  Receipt Date: 20121120
  Transmission Date: 20130627
  Serious: Yes (Other)
  Sender: FDA-Public Use
  Company Number: IE-US-EMD SERONO, INC.-230046J10IRL

PATIENT
  Age: 57 None
  Sex: Female

DRUGS (3)
  1. REBIF [Suspect]
     Indication: RELAPSING-REMITTING MULTIPLE SCLEROSIS
     Dates: start: 20091127, end: 20110418
  2. REBIF [Suspect]
     Dates: start: 20110518
  3. REBIF [Suspect]

REACTIONS (10)
  - Kidney infection [Recovered/Resolved]
  - Lower respiratory tract infection [Recovered/Resolved]
  - Pharyngitis [Recovered/Resolved]
  - Ear infection [Recovered/Resolved]
  - Middle insomnia [Unknown]
  - Feeling of body temperature change [Unknown]
  - Sensation of heaviness [Unknown]
  - Cough [Recovering/Resolving]
  - Pain [Unknown]
  - Injection site erythema [Not Recovered/Not Resolved]
